FAERS Safety Report 12487544 (Version 2)
Quarter: 2016Q3

REPORT INFORMATION
  Report Type: Report from Study
  Country: IT (occurrence: IT)
  Receive Date: 20160622
  Receipt Date: 20160907
  Transmission Date: 20161109
  Serious: Yes (Death, Hospitalization)
  Sender: FDA-Public Use
  Company Number: IT-ROCHE-1777386

PATIENT
  Age: 34 Year
  Sex: Female
  Weight: 55 kg

DRUGS (13)
  1. GLUTATHIONE [Concomitant]
     Active Substance: GLUTATHIONE
     Route: 065
  2. HALAVEN [Suspect]
     Active Substance: ERIBULIN MESYLATE
     Indication: BREAST CANCER METASTATIC
     Dosage: DAY 1-8 AND DAY 9-21
     Route: 042
     Dates: start: 20151231, end: 20160512
  3. BEVACIZUMAB [Suspect]
     Active Substance: BEVACIZUMAB
     Indication: BREAST CANCER METASTATIC
     Route: 042
     Dates: start: 20151221, end: 20160512
  4. PHYTOMENADIONE [Concomitant]
     Active Substance: PHYTONADIONE
  5. OMEPRAZOLE. [Concomitant]
     Active Substance: OMEPRAZOLE
     Route: 065
  6. OXYCODONE/PARACETAMOL [Concomitant]
     Active Substance: ACETAMINOPHEN\OXYCODONE HYDROCHLORIDE
     Dosage: 5 PLUS 235 MG
     Route: 048
  7. LEVOTHYROXINE. [Concomitant]
     Active Substance: LEVOTHYROXINE
     Route: 065
  8. BISOPROLOL FUMARATE. [Concomitant]
     Active Substance: BISOPROLOL FUMARATE
     Route: 065
  9. BLOOD TRANSFUSION [Concomitant]
     Active Substance: WHOLE BLOOD
  10. PROMAZINE HCL [Concomitant]
     Active Substance: PROMETHAZINE HYDROCHLORIDE
  11. WARFARIN SODIUM. [Concomitant]
     Active Substance: WARFARIN SODIUM
     Dosage: 5 MG SECOND TO INR
     Route: 065
  12. CIPROFLOXACIN. [Concomitant]
     Active Substance: CIPROFLOXACIN
     Route: 065
  13. MIDAZOLAM [Concomitant]
     Active Substance: MIDAZOLAM\MIDAZOLAM HYDROCHLORIDE
     Route: 065

REACTIONS (3)
  - Hepatic failure [Fatal]
  - Thrombocytopenia [Fatal]
  - International normalised ratio increased [Fatal]

NARRATIVE: CASE EVENT DATE: 20160615
